FAERS Safety Report 17476545 (Version 1)
Quarter: 2020Q1

REPORT INFORMATION
  Report Type: Spontaneous
  Country: US (occurrence: US)
  Receive Date: 20200228
  Receipt Date: 20200228
  Transmission Date: 20200409
  Serious: Yes (Hospitalization)
  Sender: FDA-Public Use
  Company Number: US-BAYER-2016-028596

PATIENT
  Age: 29 Year
  Sex: Female

DRUGS (5)
  1. ASPIRIN (CARDIO) [Suspect]
     Active Substance: ASPIRIN
     Indication: CONNECTIVE TISSUE DISORDER
     Dosage: UNK
     Route: 065
  2. XARELTO [Suspect]
     Active Substance: RIVAROXABAN
     Indication: DEEP VEIN THROMBOSIS
     Dosage: UNK
  3. LOVENOX [LEVOFLOXACIN] [Suspect]
     Active Substance: LEVOFLOXACIN
     Indication: ANTIPHOSPHOLIPID SYNDROME
     Dosage: 90 MG, QD
     Route: 058
  4. XARELTO [Suspect]
     Active Substance: RIVAROXABAN
     Indication: ANTIPHOSPHOLIPID SYNDROME
     Dosage: 20 MG, UNK
     Route: 048
     Dates: start: 20130104, end: 20130202
  5. ASPIRIN (CARDIO) [Suspect]
     Active Substance: ASPIRIN
     Indication: ADRENAL INSUFFICIENCY
     Dosage: UNK
     Route: 065

REACTIONS (2)
  - Adrenal haemorrhage [Recovering/Resolving]
  - Myocarditis [Unknown]

NARRATIVE: CASE EVENT DATE: 20130202
